FAERS Safety Report 7868168-2 (Version None)
Quarter: 2011Q4

REPORT INFORMATION
  Report Type: 
  Country: None (occurrence: None)
  Receive Date: 20111028
  Receipt Date: 20111025
  Transmission Date: 20120403
  Serious: Yes (Death, Life-Threatening, Hospitalization, Other)
  Sender: FDA-Public Use
  Company Number: US-US-EMD SERONO, INC.-7025567

PATIENT
  Sex: Female

DRUGS (4)
  1. PROCRIT [Concomitant]
     Indication: BLOOD COUNT ABNORMAL
  2. LIPITOR [Concomitant]
     Indication: BLOOD CHOLESTEROL INCREASED
  3. COREG [Concomitant]
     Indication: HYPERTENSION
  4. REBIF [Suspect]
     Indication: MULTIPLE SCLEROSIS
     Route: 058
     Dates: start: 20050121, end: 20110914

REACTIONS (15)
  - DECUBITUS ULCER [None]
  - HEAD INJURY [None]
  - FALL [None]
  - HYPERTENSION [None]
  - ABASIA [None]
  - BACTERIAL INFECTION [None]
  - DEMENTIA [None]
  - PNEUMONIA [None]
  - MULTIPLE SCLEROSIS RELAPSE [None]
  - MULTIPLE SCLEROSIS [None]
  - RENAL FAILURE [None]
  - HYPOTENSION [None]
  - CARDIAC FAILURE CONGESTIVE [None]
  - CONCUSSION [None]
  - CONVULSION [None]
